FAERS Safety Report 7520407-3 (Version None)
Quarter: 2011Q2

REPORT INFORMATION
  Report Type: 
  Country: None (occurrence: None)
  Receive Date: 20110602
  Receipt Date: 20110523
  Transmission Date: 20111010
  Serious: Yes (Life-Threatening, Hospitalization)
  Sender: FDA-Public Use
  Company Number: US-BAYER-200939705NA

PATIENT
  Age: 38 Year
  Sex: Female
  Weight: 75 kg

DRUGS (10)
  1. PERCOCET [Concomitant]
     Indication: PRODUCT USED FOR UNKNOWN INDICATION
  2. AMARYL [Concomitant]
     Indication: DIABETES MELLITUS
     Dosage: UNK
     Dates: start: 20000101, end: 20090101
  3. YAZ [Suspect]
     Indication: MENSTRUATION IRREGULAR
     Dosage: 1 DF, UNK
     Route: 048
     Dates: start: 20090215, end: 20090501
  4. LISINOPRIL [Concomitant]
     Indication: HYPERTENSION
  5. AMARYL [Concomitant]
     Indication: HYPERTENSION
  6. LISINOPRIL [Concomitant]
     Indication: DIABETES MELLITUS
     Dosage: UNK
     Dates: start: 20000101, end: 20090101
  7. YAZ [Suspect]
  8. GLUCOPHAGE [Concomitant]
     Indication: DIABETES MELLITUS
     Dosage: UNK
     Dates: start: 20000101, end: 20090101
  9. GLUCOPHAGE [Concomitant]
     Indication: HYPERTENSION
  10. VOLTAREN [Concomitant]
     Indication: PRODUCT USED FOR UNKNOWN INDICATION

REACTIONS (7)
  - GALLBLADDER DISORDER [None]
  - PAIN [None]
  - PULMONARY EMBOLISM [None]
  - FEAR [None]
  - INJURY [None]
  - EMOTIONAL DISTRESS [None]
  - ANXIETY [None]
